FAERS Safety Report 17375191 (Version 1)
Quarter: 2020Q1

REPORT INFORMATION
  Report Type: Spontaneous
  Country: US (occurrence: US)
  Receive Date: 20200121
  Receipt Date: 20200121
  Transmission Date: 20200409
  Serious: Yes (Other)
  Sender: FDA-Public Use
  Company Number: None

PATIENT
  Age: 71 Year
  Sex: Female
  Weight: 82 kg

DRUGS (1)
  1. ALOGLIPTIN (ALOGLIPTIN 25MG TAB) [Suspect]
     Active Substance: ALOGLIPTIN
     Indication: DIABETES MELLITUS
     Route: 048
     Dates: start: 20190606, end: 20190906

REACTIONS (5)
  - Presyncope [None]
  - Tooth infection [None]
  - Decreased appetite [None]
  - Diabetes mellitus inadequate control [None]
  - Myalgia [None]

NARRATIVE: CASE EVENT DATE: 20190724
